FAERS Safety Report 13142876 (Version 1)
Quarter: 2017Q1

REPORT INFORMATION
  Report Type: Spontaneous
  Country: DE (occurrence: DE)
  Receive Date: 20170124
  Receipt Date: 20170124
  Transmission Date: 20170428
  Serious: Yes (Other)
  Sender: FDA-Public Use
  Company Number: DE-TEVA-730023GER

PATIENT
  Sex: Female

DRUGS (1)
  1. PIROXICAM-RATIOPHARM 20 MG INJEKTIONSL?SUNG [Suspect]
     Active Substance: PIROXICAM
     Indication: BURSITIS
     Route: 030
     Dates: start: 20170103, end: 20170103

REACTIONS (6)
  - Localised oedema [Recovered/Resolved]
  - Erythema [Recovered/Resolved]
  - Urine output decreased [Recovered/Resolved]
  - Pain [Recovered/Resolved]
  - Hypersensitivity [Recovered/Resolved]
  - Flushing [Recovered/Resolved]

NARRATIVE: CASE EVENT DATE: 20170105
